FAERS Safety Report 14370699 (Version 1)
Quarter: 2018Q1

REPORT INFORMATION
  Report Type: Spontaneous
  Country: US (occurrence: US)
  Receive Date: 20180110
  Receipt Date: 20180110
  Transmission Date: 20180509
  Serious: No
  Sender: FDA-Public Use
  Company Number: US-PFIZER INC-2018005324

PATIENT
  Age: 28 Year
  Sex: Female

DRUGS (1)
  1. XELJANZ [Suspect]
     Active Substance: TOFACITINIB CITRATE
     Indication: RHEUMATOID ARTHRITIS
     Dosage: 5 MG, 2X/DAY
     Route: 048
     Dates: start: 20171207

REACTIONS (6)
  - Diarrhoea [Unknown]
  - Pyrexia [Unknown]
  - Chills [Unknown]
  - Abdominal pain [Unknown]
  - Nasopharyngitis [Unknown]
  - Oropharyngeal pain [Unknown]
